FAERS Safety Report 17141702 (Version 3)
Quarter: 2020Q1

REPORT INFORMATION
  Report Type: Spontaneous
  Country: US (occurrence: US)
  Receive Date: 20191211
  Receipt Date: 20200106
  Transmission Date: 20200409
  Serious: Yes (Other)
  Sender: FDA-Public Use
  Company Number: US-SA-2019SA341734

PATIENT
  Age: 72 Year
  Sex: Female
  Weight: 79 kg

DRUGS (4)
  1. PLAVIX [Suspect]
     Active Substance: CLOPIDOGREL BISULFATE
     Indication: PRODUCT USED FOR UNKNOWN INDICATION
     Dosage: 2.5 MG, UNK
     Route: 048
  2. ELIQUIS [Suspect]
     Active Substance: APIXABAN
     Indication: ATRIAL FIBRILLATION
     Dosage: 2.5 MG, BID
     Route: 065
     Dates: start: 20190830
  3. PLAVIX [Suspect]
     Active Substance: CLOPIDOGREL BISULFATE
     Dosage: UNK
     Route: 048
     Dates: start: 20190830
  4. ELIQUIS [Suspect]
     Active Substance: APIXABAN
     Dosage: UNK UNK, QD
     Route: 065
     Dates: start: 201911

REACTIONS (4)
  - Contusion [Unknown]
  - Cardiac disorder [Unknown]
  - Prescribed underdose [Unknown]
  - Off label use [Unknown]

NARRATIVE: CASE EVENT DATE: 201911
